FAERS Safety Report 25535585 (Version 1)
Quarter: 2025Q3

REPORT INFORMATION
  Report Type: Spontaneous
  Country: CA (occurrence: CA)
  Receive Date: 20250709
  Receipt Date: 20250709
  Transmission Date: 20251021
  Serious: Yes (Death, Other)
  Sender: BRISTOL-MYERS SQUIBB COMPANY
  Company Number: CA-BRISTOL-MYERS SQUIBB COMPANY-2025-095691

PATIENT
  Age: 59 Year
  Sex: Female
  Weight: 68 kg

DRUGS (279)
  1. ORENCIA [Suspect]
     Active Substance: ABATACEPT
     Indication: Rheumatoid arthritis
     Route: 067
  2. ORENCIA [Suspect]
     Active Substance: ABATACEPT
     Route: 058
  3. ORENCIA [Suspect]
     Active Substance: ABATACEPT
  4. ORENCIA [Suspect]
     Active Substance: ABATACEPT
     Route: 042
  5. ACETAMINOPHEN [Concomitant]
     Active Substance: ACETAMINOPHEN
     Indication: Product used for unknown indication
  6. ACETAMINOPHEN\OXYCODONE HYDROCHLORIDE [Concomitant]
     Active Substance: ACETAMINOPHEN\OXYCODONE HYDROCHLORIDE
     Indication: Product used for unknown indication
  7. ACTEMRA [Concomitant]
     Active Substance: TOCILIZUMAB
     Indication: Rheumatoid arthritis
     Route: 042
  8. ACTEMRA [Concomitant]
     Active Substance: TOCILIZUMAB
     Route: 058
  9. ACTEMRA [Concomitant]
     Active Substance: TOCILIZUMAB
     Route: 061
  10. ACTEMRA [Concomitant]
     Active Substance: TOCILIZUMAB
  11. ADALIMUMAB [Concomitant]
     Active Substance: ADALIMUMAB
     Indication: Rheumatoid arthritis
     Route: 058
  12. ADALIMUMAB [Concomitant]
     Active Substance: ADALIMUMAB
  13. ADALIMUMAB [Concomitant]
     Active Substance: ADALIMUMAB
  14. ADALIMUMAB [Concomitant]
     Active Substance: ADALIMUMAB
     Route: 058
  15. ADALIMUMAB [Concomitant]
     Active Substance: ADALIMUMAB
     Route: 058
  16. ADALIMUMAB [Concomitant]
     Active Substance: ADALIMUMAB
     Route: 058
  17. ALENDRONATE SODIUM [Concomitant]
     Active Substance: ALENDRONATE SODIUM
     Indication: Rheumatoid arthritis
  18. ALENDRONATE SODIUM [Concomitant]
     Active Substance: ALENDRONATE SODIUM
     Route: 048
  19. ALENDRONATE SODIUM [Concomitant]
     Active Substance: ALENDRONATE SODIUM
  20. ALENDRONIC ACID [Concomitant]
     Active Substance: ALENDRONIC ACID
     Indication: Rheumatoid arthritis
     Route: 016
  21. ALENDRONIC ACID [Concomitant]
     Active Substance: ALENDRONIC ACID
     Route: 048
  22. AMLODIPINE BESYLATE [Concomitant]
     Active Substance: AMLODIPINE BESYLATE
     Indication: Product used for unknown indication
  23. LEFLUNOMIDE [Concomitant]
     Active Substance: LEFLUNOMIDE
     Indication: Rheumatoid arthritis
  24. LEFLUNOMIDE [Concomitant]
     Active Substance: LEFLUNOMIDE
  25. LEFLUNOMIDE [Concomitant]
     Active Substance: LEFLUNOMIDE
  26. PREDNISONE [Concomitant]
     Active Substance: PREDNISONE
     Indication: Rheumatoid arthritis
     Route: 048
  27. PREDNISONE [Concomitant]
     Active Substance: PREDNISONE
     Indication: Product used for unknown indication
  28. PREDNISONE [Concomitant]
     Active Substance: PREDNISONE
     Indication: Condition aggravated
  29. ARAVA [Concomitant]
     Active Substance: LEFLUNOMIDE
     Indication: Rheumatoid arthritis
  30. ARAVA [Concomitant]
     Active Substance: LEFLUNOMIDE
     Indication: Product used for unknown indication
  31. ARAVA [Concomitant]
     Active Substance: LEFLUNOMIDE
     Route: 048
  32. ARAVA [Concomitant]
     Active Substance: LEFLUNOMIDE
  33. ARAVA [Concomitant]
     Active Substance: LEFLUNOMIDE
  34. ARAVA [Concomitant]
     Active Substance: LEFLUNOMIDE
  35. ARAVA [Concomitant]
     Active Substance: LEFLUNOMIDE
     Route: 048
  36. ARAVA [Concomitant]
     Active Substance: LEFLUNOMIDE
     Route: 048
  37. ARAVA [Concomitant]
     Active Substance: LEFLUNOMIDE
  38. ASACOL [Concomitant]
     Active Substance: MESALAMINE
     Indication: Crohn^s disease
  39. AZATHIOPRINE [Concomitant]
     Active Substance: AZATHIOPRINE
     Indication: Product used for unknown indication
  40. CALCIUM CARBONATE [Concomitant]
     Active Substance: CALCIUM CARBONATE
     Indication: Product used for unknown indication
  41. CALCIUM GLUBIONATE [Concomitant]
     Active Substance: CALCIUM GLUBIONATE
     Indication: Product used for unknown indication
  42. CALCIUM;COLECALCIFEROL;DEXPANTHENOL;DL-ALPHA TOCOPHEROL;LYSINE;NICOTIN [Concomitant]
     Indication: Product used for unknown indication
  43. CERTOLIZUMAB PEGOL [Concomitant]
     Active Substance: CERTOLIZUMAB PEGOL
     Indication: Rheumatoid arthritis
  44. CERTOLIZUMAB PEGOL [Concomitant]
     Active Substance: CERTOLIZUMAB PEGOL
     Route: 058
  45. CERTOLIZUMAB PEGOL [Concomitant]
     Active Substance: CERTOLIZUMAB PEGOL
  46. CERTOLIZUMAB PEGOL [Concomitant]
     Active Substance: CERTOLIZUMAB PEGOL
     Route: 058
  47. CETIRIZINE HYDROCHLORIDE [Concomitant]
     Active Substance: CETIRIZINE HYDROCHLORIDE
     Indication: Rheumatoid arthritis
  48. CETIRIZINE HYDROCHLORIDE [Concomitant]
     Active Substance: CETIRIZINE HYDROCHLORIDE
  49. CETIRIZINE HYDROCHLORIDE [Concomitant]
     Active Substance: CETIRIZINE HYDROCHLORIDE
  50. CETIRIZINE HYDROCHLORIDE [Concomitant]
     Active Substance: CETIRIZINE HYDROCHLORIDE
  51. CETIRIZINE HYDROCHLORIDE [Concomitant]
     Active Substance: CETIRIZINE HYDROCHLORIDE
  52. CETIRIZINE HYDROCHLORIDE AND PSEUDOEPHEDRINE HYDROCHLORIDE [Concomitant]
     Active Substance: CETIRIZINE HYDROCHLORIDE\PSEUDOEPHEDRINE HYDROCHLORIDE
     Indication: Rheumatoid arthritis
  53. CYCLOSPORINE [Concomitant]
     Active Substance: CYCLOSPORINE
     Indication: Psoriasis
  54. CIMZIA [Concomitant]
     Active Substance: CERTOLIZUMAB PEGOL
     Indication: Rheumatoid arthritis
  55. CIMZIA [Concomitant]
     Active Substance: CERTOLIZUMAB PEGOL
     Indication: Psoriasis
  56. CIMZIA [Concomitant]
     Active Substance: CERTOLIZUMAB PEGOL
     Indication: Product used for unknown indication
     Route: 058
  57. CIMZIA [Concomitant]
     Active Substance: CERTOLIZUMAB PEGOL
     Indication: Crohn^s disease
     Route: 048
  58. CIMZIA [Concomitant]
     Active Substance: CERTOLIZUMAB PEGOL
     Route: 058
  59. CIMZIA [Concomitant]
     Active Substance: CERTOLIZUMAB PEGOL
  60. CIMZIA [Concomitant]
     Active Substance: CERTOLIZUMAB PEGOL
  61. CORTISONE (HYDROCORTISONE) [Concomitant]
     Active Substance: HYDROCORTISONE
     Indication: Rheumatoid arthritis
  62. CORTISONE (HYDROCORTISONE) [Concomitant]
     Active Substance: HYDROCORTISONE
     Route: 061
  63. CORTISONE (HYDROCORTISONE) [Concomitant]
     Active Substance: HYDROCORTISONE
     Route: 048
  64. CORTISONE ACETATE [Concomitant]
     Active Substance: CORTISONE ACETATE
     Indication: Rheumatoid arthritis
     Route: 061
  65. CORTISONE ACETATE [Concomitant]
     Active Substance: CORTISONE ACETATE
  66. CORTISONE ACETATE [Concomitant]
     Active Substance: CORTISONE ACETATE
  67. CORTISONE ACETATE [Concomitant]
     Active Substance: CORTISONE ACETATE
  68. CORTISONE ACETATE [Concomitant]
     Active Substance: CORTISONE ACETATE
     Route: 061
  69. CORTISONE ACETATE [Concomitant]
     Active Substance: CORTISONE ACETATE
     Route: 061
  70. CORTISONE ACETATE [Concomitant]
     Active Substance: CORTISONE ACETATE
     Route: 061
  71. COSENTYX [Concomitant]
     Active Substance: SECUKINUMAB
     Indication: Product used for unknown indication
  72. COSENTYX [Concomitant]
     Active Substance: SECUKINUMAB
  73. DESOXIMETASONE [Concomitant]
     Active Substance: DESOXIMETASONE
     Indication: Rheumatoid arthritis
     Route: 061
  74. DESOXIMETASONE [Concomitant]
     Active Substance: DESOXIMETASONE
  75. DESOXIMETASONE [Concomitant]
     Active Substance: DESOXIMETASONE
     Route: 058
  76. DESOXIMETASONE [Concomitant]
     Active Substance: DESOXIMETASONE
     Route: 048
  77. DICLOFENAC DIETHYLAMINE [Concomitant]
     Active Substance: DICLOFENAC DIETHYLAMINE
     Indication: Product used for unknown indication
  78. DICLOFENAC SODIUM [Concomitant]
     Active Substance: DICLOFENAC SODIUM
     Indication: Rheumatoid arthritis
  79. DICLOFENAC SODIUM [Concomitant]
     Active Substance: DICLOFENAC SODIUM
     Indication: Osteoarthritis
  80. DICLOFENAC SODIUM [Concomitant]
     Active Substance: DICLOFENAC SODIUM
  81. DICLOFENAC SODIUM [Concomitant]
     Active Substance: DICLOFENAC SODIUM
  82. DIPHENHYDRAMINE HYDROCHLORIDE [Concomitant]
     Active Substance: DIPHENHYDRAMINE HYDROCHLORIDE
     Indication: Product used for unknown indication
  83. DOXYCYCLINE [Concomitant]
     Active Substance: DOXYCYCLINE
     Indication: Product used for unknown indication
  84. ENBREL [Concomitant]
     Active Substance: ETANERCEPT
     Indication: Rheumatoid arthritis
     Route: 058
  85. ENBREL [Concomitant]
     Active Substance: ETANERCEPT
     Indication: Product used for unknown indication
  86. ENBREL [Concomitant]
     Active Substance: ETANERCEPT
  87. ENBREL [Concomitant]
     Active Substance: ETANERCEPT
  88. ENBREL [Concomitant]
     Active Substance: ETANERCEPT
  89. ERELZI [Concomitant]
     Active Substance: ETANERCEPT-SZZS
     Indication: Rheumatoid arthritis
     Route: 058
  90. ERELZI [Concomitant]
     Active Substance: ETANERCEPT-SZZS
  91. ERELZI [Concomitant]
     Active Substance: ETANERCEPT-SZZS
     Route: 058
  92. ERELZI [Concomitant]
     Active Substance: ETANERCEPT-SZZS
     Route: 058
  93. ERELZI [Concomitant]
     Active Substance: ETANERCEPT-SZZS
     Route: 058
  94. ERELZI [Concomitant]
     Active Substance: ETANERCEPT-SZZS
  95. ERELZI [Concomitant]
     Active Substance: ETANERCEPT-SZZS
     Route: 058
  96. ERELZI [Concomitant]
     Active Substance: ETANERCEPT-SZZS
     Route: 058
  97. ERELZI [Concomitant]
     Active Substance: ETANERCEPT-SZZS
     Route: 058
  98. ERGOCALCIFEROL [Concomitant]
     Active Substance: ERGOCALCIFEROL
     Indication: Product used for unknown indication
  99. FOLIC ACID [Concomitant]
     Active Substance: FOLIC ACID
     Indication: Rheumatoid arthritis
  100. FOLIC ACID [Concomitant]
     Active Substance: FOLIC ACID
  101. FOLIC ACID [Concomitant]
     Active Substance: FOLIC ACID
  102. FOLIC ACID [Concomitant]
     Active Substance: FOLIC ACID
     Route: 048
  103. FOLIC ACID [Concomitant]
     Active Substance: FOLIC ACID
  104. FOLIC ACID [Concomitant]
     Active Substance: FOLIC ACID
     Route: 048
  105. FOLIC ACID [Concomitant]
     Active Substance: FOLIC ACID
  106. FOSAMAX [Concomitant]
     Active Substance: ALENDRONATE SODIUM
     Indication: Rheumatoid arthritis
  107. FOSAMAX [Concomitant]
     Active Substance: ALENDRONATE SODIUM
     Route: 058
  108. FOSAMAX [Concomitant]
     Active Substance: ALENDRONATE SODIUM
     Route: 048
  109. GOLIMUMAB [Concomitant]
     Active Substance: GOLIMUMAB
     Indication: Rheumatoid arthritis
     Route: 058
  110. GOLIMUMAB [Concomitant]
     Active Substance: GOLIMUMAB
     Route: 058
  111. GOLIMUMAB [Concomitant]
     Active Substance: GOLIMUMAB
  112. HUMIRA [Concomitant]
     Active Substance: ADALIMUMAB
     Indication: Rheumatoid arthritis
     Route: 058
  113. HUMIRA [Concomitant]
     Active Substance: ADALIMUMAB
     Route: 058
  114. HUMIRA [Concomitant]
     Active Substance: ADALIMUMAB
  115. HYDROXYCHLOROQUINE [Concomitant]
     Active Substance: HYDROXYCHLOROQUINE
     Indication: Systemic lupus erythematosus
  116. HYDROXYCHLOROQUINE [Concomitant]
     Active Substance: HYDROXYCHLOROQUINE
     Indication: Rheumatoid arthritis
  117. HYDROXYCHLOROQUINE [Concomitant]
     Active Substance: HYDROXYCHLOROQUINE
  118. HYDROXYCHLOROQUINE [Concomitant]
     Active Substance: HYDROXYCHLOROQUINE
  119. HYDROXYCHLOROQUINE [Concomitant]
     Active Substance: HYDROXYCHLOROQUINE
  120. HYDROXYCHLOROQUINE SULFATE [Concomitant]
     Active Substance: HYDROXYCHLOROQUINE SULFATE
     Indication: Systemic lupus erythematosus
     Route: 048
  121. HYDROXYCHLOROQUINE SULFATE [Concomitant]
     Active Substance: HYDROXYCHLOROQUINE SULFATE
     Indication: Rheumatoid arthritis
     Route: 058
  122. HYDROXYCHLOROQUINE SULFATE [Concomitant]
     Active Substance: HYDROXYCHLOROQUINE SULFATE
     Route: 048
  123. HYDROXYCHLOROQUINE SULFATE [Concomitant]
     Active Substance: HYDROXYCHLOROQUINE SULFATE
     Route: 048
  124. HYDROXYCHLOROQUINE SULFATE [Concomitant]
     Active Substance: HYDROXYCHLOROQUINE SULFATE
  125. HYDROXYCHLOROQUINE SULFATE [Concomitant]
     Active Substance: HYDROXYCHLOROQUINE SULFATE
     Route: 048
  126. HYDROXYCHLOROQUINE SULFATE [Concomitant]
     Active Substance: HYDROXYCHLOROQUINE SULFATE
  127. HYDROXYCHLOROQUINE SULFATE [Concomitant]
     Active Substance: HYDROXYCHLOROQUINE SULFATE
  128. HYDROXYCHLOROQUINE SULFATE [Concomitant]
     Active Substance: HYDROXYCHLOROQUINE SULFATE
  129. HYDROXYCHLOROQUINE SULFATE [Concomitant]
     Active Substance: HYDROXYCHLOROQUINE SULFATE
     Route: 048
  130. INFLIXIMAB [Concomitant]
     Active Substance: INFLIXIMAB
     Indication: Rheumatoid arthritis
     Route: 042
  131. INFLIXIMAB [Concomitant]
     Active Substance: INFLIXIMAB
     Indication: Crohn^s disease
  132. INFLIXIMAB [Concomitant]
     Active Substance: INFLIXIMAB
     Route: 041
  133. INFLIXIMAB [Concomitant]
     Active Substance: INFLIXIMAB
  134. ISOPROPYL ALCOHOL [Concomitant]
     Active Substance: ISOPROPYL ALCOHOL
     Indication: Product used for unknown indication
     Route: 061
  135. LANSOPRAZOLE [Concomitant]
     Active Substance: LANSOPRAZOLE
     Indication: Product used for unknown indication
  136. LEFLUNOMIDE [Concomitant]
     Active Substance: LEFLUNOMIDE
     Indication: Rheumatoid arthritis
  137. LEFLUNOMIDE [Concomitant]
     Active Substance: LEFLUNOMIDE
     Route: 048
  138. LEFLUNOMIDE [Concomitant]
     Active Substance: LEFLUNOMIDE
  139. LEFLUNOMIDE [Concomitant]
     Active Substance: LEFLUNOMIDE
  140. LEFLUNOMIDE [Concomitant]
     Active Substance: LEFLUNOMIDE
  141. LEFLUNOMIDE [Concomitant]
     Active Substance: LEFLUNOMIDE
     Route: 048
  142. LEFLUNOMIDE [Concomitant]
     Active Substance: LEFLUNOMIDE
     Route: 048
  143. LEVOCETIRIZINE HYDROCHLORIDE [Concomitant]
     Active Substance: LEVOCETIRIZINE HYDROCHLORIDE
     Indication: Product used for unknown indication
  144. METHOTREXATE [Concomitant]
     Active Substance: METHOTREXATE
     Indication: Rheumatoid arthritis
     Route: 058
  145. METHOTREXATE [Concomitant]
     Active Substance: METHOTREXATE
     Indication: Crohn^s disease
     Route: 058
  146. METHOTREXATE [Concomitant]
     Active Substance: METHOTREXATE
     Route: 013
  147. METHOTREXATE [Concomitant]
     Active Substance: METHOTREXATE
     Route: 048
  148. METHOTREXATE [Concomitant]
     Active Substance: METHOTREXATE
     Route: 058
  149. METHOTREXATE [Concomitant]
     Active Substance: METHOTREXATE
     Route: 058
  150. METHOTREXATE [Concomitant]
     Active Substance: METHOTREXATE
     Route: 048
  151. METHOTREXATE [Concomitant]
     Active Substance: METHOTREXATE
     Route: 048
  152. METHOTREXATE [Concomitant]
     Active Substance: METHOTREXATE
     Route: 058
  153. METHOTREXATE [Concomitant]
     Active Substance: METHOTREXATE
  154. METHOTREXATE [Concomitant]
     Active Substance: METHOTREXATE
     Route: 013
  155. METHOTREXATE [Concomitant]
     Active Substance: METHOTREXATE
  156. METHOTREXATE [Concomitant]
     Active Substance: METHOTREXATE
     Route: 013
  157. METHOTREXATE [Concomitant]
     Active Substance: METHOTREXATE
     Route: 048
  158. METHOTREXATE [Concomitant]
     Active Substance: METHOTREXATE
     Route: 048
  159. METHYLPREDNISOLONE SODIUM SUCCINATE [Concomitant]
     Active Substance: METHYLPREDNISOLONE SODIUM SUCCINATE
     Indication: Product used for unknown indication
  160. METHYLPREDNISOLONE SODIUM SUCCINATE [Concomitant]
     Active Substance: METHYLPREDNISOLONE SODIUM SUCCINATE
  161. MINOCYCLINE HYDROCHLORIDE [Concomitant]
     Active Substance: MINOCYCLINE HYDROCHLORIDE
     Indication: Product used for unknown indication
  162. MINOCYCLINE HYDROCHLORIDE [Concomitant]
     Active Substance: MINOCYCLINE HYDROCHLORIDE
  163. MORPHINE SULFATE [Concomitant]
     Active Substance: MORPHINE SULFATE
     Indication: Rheumatoid arthritis
  164. MYOCHRYSINE [Concomitant]
     Active Substance: GOLD SODIUM THIOMALATE
     Indication: Product used for unknown indication
     Route: 030
  165. OTEZLA [Concomitant]
     Active Substance: APREMILAST
     Indication: Rheumatoid arthritis
     Route: 048
  166. OTEZLA [Concomitant]
     Active Substance: APREMILAST
     Route: 048
  167. OTEZLA [Concomitant]
     Active Substance: APREMILAST
  168. OTEZLA [Concomitant]
     Active Substance: APREMILAST
  169. OTEZLA [Concomitant]
     Active Substance: APREMILAST
     Route: 048
  170. OTEZLA [Concomitant]
     Active Substance: APREMILAST
     Route: 048
  171. OXYCODONE HYDROCHLORIDE [Concomitant]
     Active Substance: OXYCODONE HYDROCHLORIDE
     Indication: Product used for unknown indication
  172. OXYCODONE TEREPHTHALATE [Concomitant]
     Active Substance: OXYCODONE TEREPHTHALATE
     Indication: Product used for unknown indication
  173. PANTOPRAZOLE [Concomitant]
     Active Substance: PANTOPRAZOLE
     Indication: Product used for unknown indication
  174. PHENYLEPHRINE HYDROCHLORIDE [Concomitant]
     Active Substance: PHENYLEPHRINE HYDROCHLORIDE
     Indication: Product used for unknown indication
  175. PHTHALYLSULFATHIAZOLE [Concomitant]
     Active Substance: PHTHALYLSULFATHIAZOLE
     Indication: Product used for unknown indication
  176. PHTHALYLSULFATHIAZOLE [Concomitant]
     Active Substance: PHTHALYLSULFATHIAZOLE
     Route: 048
  177. PHTHALYLSULFATHIAZOLE [Concomitant]
     Active Substance: PHTHALYLSULFATHIAZOLE
     Route: 048
  178. PHTHALYLSULFATHIAZOLE [Concomitant]
     Active Substance: PHTHALYLSULFATHIAZOLE
     Route: 048
  179. HYDROXYCHLOROQUINE DIPHOSPHATE [Concomitant]
     Active Substance: HYDROXYCHLOROQUINE DIPHOSPHATE
     Indication: Systemic lupus erythematosus
  180. HYDROXYCHLOROQUINE DIPHOSPHATE [Concomitant]
     Active Substance: HYDROXYCHLOROQUINE DIPHOSPHATE
     Indication: Rheumatoid arthritis
  181. HYDROXYCHLOROQUINE DIPHOSPHATE [Concomitant]
     Active Substance: HYDROXYCHLOROQUINE DIPHOSPHATE
  182. PREDNISONE [Concomitant]
     Active Substance: PREDNISONE
     Indication: Rheumatoid arthritis
     Route: 048
  183. PREDNISONE [Concomitant]
     Active Substance: PREDNISONE
     Indication: Condition aggravated
  184. PREDNISONE [Concomitant]
     Active Substance: PREDNISONE
     Indication: Arthralgia
     Route: 048
  185. PREDNISONE [Concomitant]
     Active Substance: PREDNISONE
     Route: 048
  186. PREDNISONE [Concomitant]
     Active Substance: PREDNISONE
     Route: 048
  187. PSEUDOEPHEDRINE [Concomitant]
     Active Substance: PSEUDOEPHEDRINE
     Indication: Rheumatoid arthritis
  188. PSEUDOEPHEDRINE HYDROCHLORIDE [Concomitant]
     Active Substance: PSEUDOEPHEDRINE HYDROCHLORIDE
     Indication: Rheumatoid arthritis
     Route: 048
  189. PSEUDOEPHEDRINE HYDROCHLORIDE [Concomitant]
     Active Substance: PSEUDOEPHEDRINE HYDROCHLORIDE
     Indication: Arthralgia
     Route: 048
  190. QUETIAPINE FUMARATE [Concomitant]
     Active Substance: QUETIAPINE FUMARATE
     Indication: Product used for unknown indication
  191. RAMIPRIL [Concomitant]
     Active Substance: RAMIPRIL
     Indication: Product used for unknown indication
  192. CETIRIZINE HYDROCHLORIDE [Concomitant]
     Active Substance: CETIRIZINE HYDROCHLORIDE
     Indication: Rheumatoid arthritis
  193. CETIRIZINE HYDROCHLORIDE\PSEUDOEPHEDRINE HYDROCHLORIDE [Concomitant]
     Active Substance: CETIRIZINE HYDROCHLORIDE\PSEUDOEPHEDRINE HYDROCHLORIDE
     Indication: Rheumatoid arthritis
  194. REMICADE [Concomitant]
     Active Substance: INFLIXIMAB
     Indication: Rheumatoid arthritis
  195. REMICADE [Concomitant]
     Active Substance: INFLIXIMAB
     Indication: Crohn^s disease
  196. REMICADE [Concomitant]
     Active Substance: INFLIXIMAB
     Indication: Ankylosing spondylitis
     Route: 042
  197. REMICADE [Concomitant]
     Active Substance: INFLIXIMAB
  198. REMICADE [Concomitant]
     Active Substance: INFLIXIMAB
     Route: 042
  199. REMICADE [Concomitant]
     Active Substance: INFLIXIMAB
     Route: 042
  200. REMICADE [Concomitant]
     Active Substance: INFLIXIMAB
  201. REMICADE [Concomitant]
     Active Substance: INFLIXIMAB
     Route: 042
  202. REMICADE [Concomitant]
     Active Substance: INFLIXIMAB
     Route: 042
  203. REMICADE [Concomitant]
     Active Substance: INFLIXIMAB
     Route: 042
  204. REMICADE [Concomitant]
     Active Substance: INFLIXIMAB
     Route: 042
  205. REMICADE [Concomitant]
     Active Substance: INFLIXIMAB
  206. REMICADE [Concomitant]
     Active Substance: INFLIXIMAB
  207. REMICADE [Concomitant]
     Active Substance: INFLIXIMAB
  208. REMICADE [Concomitant]
     Active Substance: INFLIXIMAB
  209. RITUXIMAB [Concomitant]
     Active Substance: RITUXIMAB
     Indication: Rheumatoid arthritis
     Route: 042
  210. RITUXIMAB [Concomitant]
     Active Substance: RITUXIMAB
     Route: 041
  211. RITUXIMAB [Concomitant]
     Active Substance: RITUXIMAB
  212. RITUXIMAB [Concomitant]
     Active Substance: RITUXIMAB
     Route: 041
  213. RITUXIMAB [Concomitant]
     Active Substance: RITUXIMAB
     Route: 042
  214. RITUXIMAB [Concomitant]
     Active Substance: RITUXIMAB
  215. RITUXIMAB [Concomitant]
     Active Substance: RITUXIMAB
     Route: 042
  216. SIMPONI [Concomitant]
     Active Substance: GOLIMUMAB
     Indication: Rheumatoid arthritis
     Route: 058
  217. SIMPONI [Concomitant]
     Active Substance: GOLIMUMAB
     Route: 058
  218. SIMPONI [Concomitant]
     Active Substance: GOLIMUMAB
  219. SIMPONI [Concomitant]
     Active Substance: GOLIMUMAB
  220. SIMPONI [Concomitant]
     Active Substance: GOLIMUMAB
     Route: 058
  221. SIMPONI [Concomitant]
     Active Substance: GOLIMUMAB
     Route: 058
  222. SIMPONI [Concomitant]
     Active Substance: GOLIMUMAB
     Route: 058
  223. SIMPONI [Concomitant]
     Active Substance: GOLIMUMAB
     Route: 042
  224. SIRUKUMAB [Concomitant]
     Active Substance: SIRUKUMAB
     Indication: Product used for unknown indication
     Route: 058
  225. SIRUKUMAB [Concomitant]
     Active Substance: SIRUKUMAB
  226. STELARA [Concomitant]
     Active Substance: USTEKINUMAB
     Indication: Product used for unknown indication
     Route: 058
  227. SULFASALAZINE [Concomitant]
     Active Substance: SULFASALAZINE
     Indication: Rheumatoid arthritis
  228. SULFASALAZINE [Concomitant]
     Active Substance: SULFASALAZINE
  229. SULFASALAZINE [Concomitant]
     Active Substance: SULFASALAZINE
  230. SULFASALAZINE [Concomitant]
     Active Substance: SULFASALAZINE
  231. SULFASALAZINE [Concomitant]
     Active Substance: SULFASALAZINE
     Route: 058
  232. SULFASALAZINE [Concomitant]
     Active Substance: SULFASALAZINE
  233. SULFASALAZINE [Concomitant]
     Active Substance: SULFASALAZINE
  234. SULFASALAZINE [Concomitant]
     Active Substance: SULFASALAZINE
  235. SULFASALAZINE [Concomitant]
     Active Substance: SULFASALAZINE
  236. SULFASALAZINE [Concomitant]
     Active Substance: SULFASALAZINE
     Route: 048
  237. SULFASALAZINE [Concomitant]
     Active Substance: SULFASALAZINE
     Route: 048
  238. SULFASALAZINE [Concomitant]
     Active Substance: SULFASALAZINE
     Route: 058
  239. SULFASALAZINE [Concomitant]
     Active Substance: SULFASALAZINE
     Route: 048
  240. SULFASALAZINE [Concomitant]
     Active Substance: SULFASALAZINE
     Route: 048
  241. SULFASALAZINE [Concomitant]
     Active Substance: SULFASALAZINE
     Route: 058
  242. SULFASALAZINE [Concomitant]
     Active Substance: SULFASALAZINE
  243. SULFASALAZINE [Concomitant]
     Active Substance: SULFASALAZINE
  244. SULFASALAZINE [Concomitant]
     Active Substance: SULFASALAZINE
     Route: 048
  245. SULFASALAZINE [Concomitant]
     Active Substance: SULFASALAZINE
     Route: 048
  246. SULFASALAZINE [Concomitant]
     Active Substance: SULFASALAZINE
     Route: 048
  247. SULFASALAZINE [Concomitant]
     Active Substance: SULFASALAZINE
     Route: 058
  248. TELMISARTAN [Concomitant]
     Active Substance: TELMISARTAN
     Indication: Product used for unknown indication
  249. TOCILIZUMAB [Concomitant]
     Active Substance: TOCILIZUMAB
     Indication: Rheumatoid arthritis
  250. TOCILIZUMAB [Concomitant]
     Active Substance: TOCILIZUMAB
     Route: 061
  251. TOCILIZUMAB [Concomitant]
     Active Substance: TOCILIZUMAB
  252. TOCILIZUMAB [Concomitant]
     Active Substance: TOCILIZUMAB
     Route: 042
  253. TOCILIZUMAB [Concomitant]
     Active Substance: TOCILIZUMAB
     Route: 048
  254. TOCILIZUMAB [Concomitant]
     Active Substance: TOCILIZUMAB
     Route: 058
  255. TOCILIZUMAB [Concomitant]
     Active Substance: TOCILIZUMAB
     Route: 042
  256. TOCILIZUMAB [Concomitant]
     Active Substance: TOCILIZUMAB
     Route: 016
  257. TOFACITINIB CITRATE [Concomitant]
     Active Substance: TOFACITINIB CITRATE
     Indication: Product used for unknown indication
  258. TOPICORT [Concomitant]
     Active Substance: DESOXIMETASONE
     Indication: Rheumatoid arthritis
  259. USTEKINUMAB [Concomitant]
     Active Substance: USTEKINUMAB
     Indication: Product used for unknown indication
     Route: 058
  260. USTEKINUMAB [Concomitant]
     Active Substance: USTEKINUMAB
     Indication: Crohn^s disease
     Route: 048
  261. USTEKINUMAB [Concomitant]
     Active Substance: USTEKINUMAB
     Route: 058
  262. VITAMIN C [Concomitant]
     Active Substance: ASCORBIC ACID
     Indication: Product used for unknown indication
  263. VITAMIN D3 [Concomitant]
     Active Substance: CHOLECALCIFEROL
     Indication: Product used for unknown indication
  264. PREDNISONE [Concomitant]
     Active Substance: PREDNISONE
     Indication: Rheumatoid arthritis
     Route: 048
  265. XELJANZ [Concomitant]
     Active Substance: TOFACITINIB CITRATE
     Indication: Rheumatoid arthritis
  266. XELJANZ [Concomitant]
     Active Substance: TOFACITINIB CITRATE
     Route: 048
  267. XELJANZ [Concomitant]
     Active Substance: TOFACITINIB CITRATE
  268. XELJANZ [Concomitant]
     Active Substance: TOFACITINIB CITRATE
  269. XELJANZ [Concomitant]
     Active Substance: TOFACITINIB CITRATE
     Route: 048
  270. XELJANZ [Concomitant]
     Active Substance: TOFACITINIB CITRATE
     Route: 048
  271. XELJANZ [Concomitant]
     Active Substance: TOFACITINIB CITRATE
     Route: 048
  272. XELJANZ [Concomitant]
     Active Substance: TOFACITINIB CITRATE
     Route: 048
  273. XELJANZ [Concomitant]
     Active Substance: TOFACITINIB CITRATE
     Route: 048
  274. XELJANZ [Concomitant]
     Active Substance: TOFACITINIB CITRATE
  275. XELJANZ [Concomitant]
     Active Substance: TOFACITINIB CITRATE
  276. XELJANZ [Concomitant]
     Active Substance: TOFACITINIB CITRATE
     Route: 048
  277. XELJANZ [Concomitant]
     Active Substance: TOFACITINIB CITRATE
     Route: 048
  278. XELJANZ [Concomitant]
     Active Substance: TOFACITINIB CITRATE
  279. ZOPICLONE [Concomitant]
     Active Substance: ZOPICLONE
     Indication: Product used for unknown indication

REACTIONS (1)
  - Death [Fatal]
